FAERS Safety Report 9460708 (Version 1)
Quarter: 2013Q3

REPORT INFORMATION
  Report Type: Spontaneous
  Country: GB (occurrence: None)
  Receive Date: 20130813
  Receipt Date: 20130813
  Transmission Date: 20140515
  Serious: Yes (Other)
  Sender: FDA-Public Use
  Company Number: GER/UKI/13/0033916

PATIENT
  Age: 40 Year
  Sex: Male

DRUGS (2)
  1. OMEPRAZOLE (OMEPRAZOLE) [Suspect]
     Indication: PROPHYLAXIS AGAINST GASTROINTESTINAL ULCER
     Route: 048
     Dates: start: 20130501
  2. MELOXICAM (MELOXICAM) [Suspect]
     Indication: BACK PAIN
     Route: 048
     Dates: start: 20130501

REACTIONS (2)
  - Abnormal dreams [None]
  - Anger [None]
